FAERS Safety Report 23522689 (Version 1)
Quarter: 2024Q1

REPORT INFORMATION
  Report Type: Spontaneous
  Country: US (occurrence: None)
  Receive Date: 20240213
  Receipt Date: 20240213
  Transmission Date: 20240410
  Serious: Yes (Other)
  Sender: FDA-Public Use
  Company Number: None

PATIENT
  Age: 48 Year
  Sex: Male
  Weight: 76.5 kg

DRUGS (1)
  1. INFLECTRA [Suspect]
     Active Substance: INFLIXIMAB-DYYB
     Indication: Noninfective chorioretinitis
     Dosage: OTHER FREQUENCY : WEEK 0, 2 THEN Q4W;?
     Route: 041

REACTIONS (7)
  - Heart rate increased [None]
  - Dyspnoea [None]
  - Malaise [None]
  - Frequent bowel movements [None]
  - Hypoaesthesia [None]
  - Paraesthesia [None]
  - Nausea [None]

NARRATIVE: CASE EVENT DATE: 20231215
